FAERS Safety Report 7792250-1 (Version None)
Quarter: 2011Q4

REPORT INFORMATION
  Report Type: 
  Country: None (occurrence: None)
  Receive Date: 20111003
  Receipt Date: 20110920
  Transmission Date: 20120403
  Serious: Yes (Other)
  Sender: FDA-Public Use
  Company Number: US-ELI_LILLY_AND_COMPANY-US201109006350

PATIENT
  Sex: Female

DRUGS (1)
  1. FORTEO [Suspect]
     Dosage: UNK, UNK

REACTIONS (6)
  - PAIN [None]
  - BURNING SENSATION [None]
  - KNEE ARTHROPLASTY [None]
  - ARTHRITIS [None]
  - VARICOSE VEIN [None]
  - BONE FRAGMENTATION [None]
